FAERS Safety Report 11211796 (Version 1)
Quarter: 2015Q2

REPORT INFORMATION
  Report Type: Spontaneous
  Country: US (occurrence: US)
  Receive Date: 20150623
  Receipt Date: 20150623
  Transmission Date: 20150821
  Serious: Yes (Death, Other)
  Sender: FDA-Public Use
  Company Number: US-SA-2015SA087158

PATIENT
  Age: 62 Year
  Sex: Male

DRUGS (1)
  1. BCG FOR IMMUNOTHERAPY [Suspect]
     Active Substance: BACILLUS CALMETTE-GUERIN ANTIGEN, UNSPECIFIED SUBSTRAIN
     Indication: BLADDER CANCER
     Route: 043

REACTIONS (10)
  - Weight decreased [Unknown]
  - Mycobacterium tuberculosis complex test positive [Fatal]
  - Splenomegaly [Unknown]
  - Bovine tuberculosis [Fatal]
  - Ascites [Unknown]
  - Sarcoidosis [Unknown]
  - Hepatic fibrosis [Unknown]
  - Chronic kidney disease [Unknown]
  - Hepatic steatosis [Unknown]
  - Granuloma [Unknown]
